FAERS Safety Report 9854876 (Version 2)
Quarter: 2014Q1

REPORT INFORMATION
  Report Type: Report from Study
  Country: JP (occurrence: JP)
  Receive Date: 20140130
  Receipt Date: 20140312
  Transmission Date: 20141002
  Serious: Yes (Other)
  Sender: FDA-Public Use
  Company Number: JP-JNJFOC-20140117000

PATIENT
  Age: 50 Year
  Sex: Female
  Weight: 45 kg

DRUGS (29)
  1. REMICADE [Suspect]
     Indication: COLITIS ULCERATIVE
     Route: 042
     Dates: start: 20110801
  2. REMICADE [Suspect]
     Indication: COLITIS ULCERATIVE
     Route: 042
     Dates: start: 20120208
  3. REMICADE [Suspect]
     Indication: COLITIS ULCERATIVE
     Route: 042
     Dates: start: 20110815
  4. REMICADE [Suspect]
     Indication: COLITIS ULCERATIVE
     Route: 042
     Dates: start: 20110913
  5. REMICADE [Suspect]
     Indication: COLITIS ULCERATIVE
     Route: 042
     Dates: start: 20111108
  6. REMICADE [Suspect]
     Indication: COLITIS ULCERATIVE
     Route: 042
     Dates: start: 20120104
  7. ISCOTIN [Suspect]
     Indication: ANTIBIOTIC PROPHYLAXIS
     Route: 048
     Dates: start: 20110813, end: 20120227
  8. POLARAMIN [Concomitant]
     Indication: PROPHYLAXIS
     Route: 042
  9. POLARAMIN [Concomitant]
     Indication: PREMEDICATION
     Route: 042
  10. PREDONINE [Concomitant]
     Indication: COLITIS ULCERATIVE
     Route: 048
     Dates: start: 20120221
  11. PREDONINE [Concomitant]
     Indication: COLITIS ULCERATIVE
     Route: 048
     Dates: start: 20110719, end: 20110727
  12. PREDONINE [Concomitant]
     Indication: COLITIS ULCERATIVE
     Route: 048
     Dates: start: 20110728, end: 20110912
  13. PREDONINE [Concomitant]
     Indication: COLITIS ULCERATIVE
     Route: 048
     Dates: start: 20110913, end: 20111010
  14. PREDONINE [Concomitant]
     Indication: COLITIS ULCERATIVE
     Route: 048
     Dates: start: 20111011, end: 20111107
  15. PREDONINE [Concomitant]
     Indication: COLITIS ULCERATIVE
     Route: 048
     Dates: start: 20111108, end: 20111206
  16. PREDONINE [Concomitant]
     Indication: COLITIS ULCERATIVE
     Route: 048
     Dates: start: 20120227, end: 20120229
  17. CALONAL [Concomitant]
     Indication: PROPHYLAXIS
     Route: 048
     Dates: start: 20110801
  18. GASTER [Concomitant]
     Indication: PROPHYLAXIS
     Route: 042
     Dates: start: 20110801
  19. GASTER [Concomitant]
     Indication: PREMEDICATION
     Route: 042
     Dates: start: 20110801
  20. PYDOXAL [Concomitant]
     Indication: PROPHYLAXIS
     Route: 048
     Dates: start: 20110813, end: 20120227
  21. ATARAX-P [Concomitant]
     Indication: RASH
     Route: 048
     Dates: start: 20120131, end: 20120213
  22. METHYLPREDNISOLONE [Concomitant]
     Indication: COLITIS ULCERATIVE
     Route: 042
     Dates: start: 20120228
  23. ASACOL [Concomitant]
     Indication: COLITIS ULCERATIVE
     Route: 048
  24. CEREKINON [Concomitant]
     Indication: IRRITABLE BOWEL SYNDROME
     Route: 048
  25. MIYA BM [Concomitant]
     Indication: COLITIS ULCERATIVE
     Route: 048
  26. PRAVASTATIN SODIUM [Concomitant]
     Indication: LIPIDS ABNORMAL
     Route: 048
  27. ACTONEL [Concomitant]
     Indication: PROPHYLAXIS
     Route: 048
  28. PARIET [Concomitant]
     Indication: PROPHYLAXIS
     Route: 048
  29. LOXONIN [Concomitant]
     Indication: HEADACHE
     Route: 048

REACTIONS (3)
  - Anaphylactic reaction [Recovered/Resolved]
  - Myositis [Recovering/Resolving]
  - Type IV hypersensitivity reaction [Recovered/Resolved]
